FAERS Safety Report 6831178-8 (Version None)
Quarter: 2010Q3

REPORT INFORMATION
  Report Type: 
  Country: None (occurrence: None)
  Receive Date: 20100709
  Receipt Date: 20100709
  Transmission Date: 20110219
  Serious: Yes (Disabling)
  Sender: FDA-Public Use
  Company Number: None

PATIENT
  Age: 65 Year
  Sex: Female
  Weight: 78.0187 kg

DRUGS (1)
  1. METOZOLV ODT [Suspect]
     Indication: NAUSEA
     Dosage: ONE TWICE DAILY PO
     Route: 048
     Dates: start: 20100630, end: 20100707

REACTIONS (2)
  - GAIT DISTURBANCE [None]
  - TREMOR [None]
